FAERS Safety Report 8773564 (Version 6)
Quarter: 2012Q4

REPORT INFORMATION
  Report Type: 
  Country: AU (occurrence: AU)
  Receive Date: 20120907
  Receipt Date: 20121126
  Transmission Date: 20130627
  Serious: Yes (Hospitalization, Other)
  Sender: FDA-Public Use
  Company Number: PHHY2012AU077155

PATIENT
  Sex: Female

DRUGS (12)
  1. ACLASTA [Suspect]
     Indication: OSTEOPOROSIS
     Dosage: 5 mg, UNK
     Route: 042
     Dates: start: 201008
  2. ACLASTA [Suspect]
     Dosage: 5 mg, UNK
     Route: 042
     Dates: start: 20110909
  3. FOSAMAX [Suspect]
     Dosage: 70 mg, weekly
     Route: 048
     Dates: start: 20060216, end: 20070222
  4. MORPHINE [Concomitant]
     Indication: BACK DISORDER
     Dosage: UNK UKN, UNK
  5. ANAMORPH [Concomitant]
     Indication: BACK PAIN
     Dosage: 30 mg, eight time daily
     Route: 048
  6. ENDEP [Concomitant]
     Dosage: 50 mg, nightly
     Route: 048
     Dates: start: 2005
  7. NEXIUM [Concomitant]
     Indication: GASTROOESOPHAGEAL REFLUX DISEASE
     Dosage: 40 mg, UNK
     Route: 048
     Dates: start: 2006
  8. PREMARIN [Concomitant]
     Indication: GASTROOESOPHAGEAL REFLUX DISEASE
     Dosage: 10 mg, UNK
     Route: 048
     Dates: start: 2007
  9. SERETIDE [Concomitant]
     Indication: ASTHMA
     Dosage: UNK UKN, BID
     Dates: start: 2010
  10. UREMIDE [Concomitant]
     Dosage: 40 mg, UNK
     Dates: start: 2005
  11. VENTOLIN [Concomitant]
     Indication: ASTHMA
     Dosage: UNK UKN, UNK
     Dates: start: 2007
  12. XANAX [Concomitant]
     Indication: ANXIETY
     Dosage: 1 mg, BID
     Route: 048
     Dates: start: 2010

REACTIONS (22)
  - Sinusitis [Unknown]
  - Headache [Unknown]
  - Influenza like illness [Not Recovered/Not Resolved]
  - Asthenia [Not Recovered/Not Resolved]
  - Malaise [Unknown]
  - Chills [Unknown]
  - Nausea [Unknown]
  - Fatigue [Not Recovered/Not Resolved]
  - Insomnia [Unknown]
  - Oral pain [Not Recovered/Not Resolved]
  - Tooth loss [Not Recovered/Not Resolved]
  - Loose tooth [Unknown]
  - Tooth disorder [Not Recovered/Not Resolved]
  - Gingival disorder [Unknown]
  - Alveolar osteitis [Unknown]
  - Gingival swelling [Unknown]
  - Impaired healing [Unknown]
  - Pain in jaw [Unknown]
  - Quality of life decreased [Unknown]
  - Feeling abnormal [Unknown]
  - Urine output decreased [Recovered/Resolved]
  - Pain [Unknown]
